FAERS Safety Report 5627172-5 (Version None)
Quarter: 2008Q1

REPORT INFORMATION
  Report Type: 
  Country: None (occurrence: None)
  Receive Date: 20080212
  Receipt Date: 20080212
  Transmission Date: 20080703
  Serious: Yes (Disabling)
  Sender: FDA-Public Use
  Company Number: None

PATIENT
  Sex: Male
  Weight: 97.0698 kg

DRUGS (9)
  1. METROGEL [Suspect]
     Indication: ROSACEA
     Dosage: APPLIED TO FACE ONCE/DAY, 2-3X/WK CUTANEOUS
     Route: 003
     Dates: start: 20071018, end: 20071103
  2. METROGEL [Suspect]
     Indication: ROSACEA
     Dosage: APPLIED TO FACE AND CHEST ONCE DAILY CUTANEOUS
     Route: 003
     Dates: start: 20071104, end: 20071107
  3. METROGEL [Suspect]
     Indication: SKIN LESION
     Dosage: APPLIED TO FACE AND CHEST ONCE DAILY CUTANEOUS
     Route: 003
     Dates: start: 20071104, end: 20071107
  4. WARFARIN SODIUM [Concomitant]
  5. ZOCOR [Concomitant]
  6. LUNESTA [Concomitant]
  7. CARAC [Concomitant]
  8. FISH OIL [Concomitant]
  9. WEIGHTLOSS TEA [Concomitant]

REACTIONS (1)
  - INTERNATIONAL NORMALISED RATIO INCREASED [None]
